FAERS Safety Report 22221396 (Version 1)
Quarter: 2023Q2

REPORT INFORMATION
  Report Type: Spontaneous
  Country: US (occurrence: US)
  Receive Date: 20230418
  Receipt Date: 20230418
  Transmission Date: 20230721
  Serious: Yes (Other)
  Sender: FDA-Public Use
  Company Number: US-002147023-NVSC2023US085597

PATIENT
  Age: 67 Year
  Sex: Female

DRUGS (6)
  1. AZITHROMYCIN [Suspect]
     Active Substance: AZITHROMYCIN
     Indication: Mycobacterial infection
     Dosage: UNK
     Route: 065
     Dates: start: 20230105
  2. AZITHROMYCIN [Suspect]
     Active Substance: AZITHROMYCIN
     Indication: Mycobacterium avium complex infection
  3. ETHAMBUTOL [Suspect]
     Active Substance: ETHAMBUTOL HYDROCHLORIDE
     Indication: Mycobacterial infection
     Dosage: UNK
     Route: 065
     Dates: start: 20230105
  4. ETHAMBUTOL [Suspect]
     Active Substance: ETHAMBUTOL HYDROCHLORIDE
     Indication: Mycobacterium avium complex infection
  5. RIFABUTIN [Suspect]
     Active Substance: RIFABUTIN
     Indication: Mycobacterial infection
     Dosage: UNK
     Route: 065
     Dates: start: 20230105
  6. RIFABUTIN [Suspect]
     Active Substance: RIFABUTIN
     Indication: Mycobacterium avium complex infection

REACTIONS (14)
  - Intervertebral discitis [Unknown]
  - Osteomyelitis [Unknown]
  - Nocardiosis [Unknown]
  - Dislocation of vertebra [Unknown]
  - Pancytopenia [Unknown]
  - Agranulocytosis [Unknown]
  - Deafness [Unknown]
  - Cellulitis [Unknown]
  - Mycobacterium avium complex infection [Unknown]
  - Disease progression [Unknown]
  - Blood creatinine increased [Unknown]
  - Spinal stenosis [Unknown]
  - Tinnitus [Unknown]
  - Product use in unapproved indication [Unknown]
